FAERS Safety Report 7611190-1 (Version None)
Quarter: 2011Q3

REPORT INFORMATION
  Report Type: 
  Country: None (occurrence: None)
  Receive Date: 20110715
  Receipt Date: 20110705
  Transmission Date: 20111222
  Serious: Yes (Other)
  Sender: FDA-Public Use
  Company Number: FR-JNJFOC-20110703661

PATIENT

DRUGS (1)
  1. CLADRIBINE [Suspect]
     Indication: SYSTEMIC MASTOCYTOSIS
     Dosage: FOR 5 DAYS, REPEATED AT 4-12 WEEKS
     Route: 065

REACTIONS (1)
  - ACUTE MYELOID LEUKAEMIA [None]
